FAERS Safety Report 10429685 (Version 3)
Quarter: 2014Q3

REPORT INFORMATION
  Report Type: Report from Study
  Country: US (occurrence: US)
  Receive Date: 20140904
  Receipt Date: 20140912
  Transmission Date: 20150326
  Serious: Yes (Death, Other)
  Sender: FDA-Public Use
  Company Number: PHEH2014US017668

PATIENT
  Sex: Female
  Weight: 50 kg

DRUGS (9)
  1. EFFEXOR XR [Concomitant]
     Active Substance: VENLAFAXINE HYDROCHLORIDE
     Dosage: UNK
  2. PROTONIX [Concomitant]
     Active Substance: PANTOPRAZOLE SODIUM
     Dosage: UNK
  3. LOMOTIL//LOPERAMIDE HYDROCHLORIDE [Concomitant]
     Dosage: UNK
  4. ALBUTEROL. [Concomitant]
     Active Substance: ALBUTEROL
  5. LOTREL [Concomitant]
     Active Substance: AMLODIPINE BESYLATE\BENAZEPRIL HYDROCHLORIDE
     Dosage: UNK
  6. DALIRESP [Concomitant]
     Active Substance: ROFLUMILAST
     Dosage: UNK
  7. TOBI [Suspect]
     Active Substance: TOBRAMYCIN
     Indication: BRONCHIECTASIS
     Dosage: 300 MG PER 5 ML, BID (FIRST WEEK OF EACH MONTH)
     Route: 055
     Dates: start: 201304
  8. PREDNISONE. [Concomitant]
     Active Substance: PREDNISONE
  9. GAMMAGLOBULIN [Concomitant]
     Active Substance: HUMAN IMMUNOGLOBULIN G

REACTIONS (8)
  - Immunodeficiency [Unknown]
  - Nausea [Unknown]
  - Disease complication [Fatal]
  - Bronchiectasis [Unknown]
  - Multi-organ failure [Unknown]
  - Multimorbidity [Unknown]
  - Pneumothorax [Unknown]
  - Pulmonary fibrosis [Unknown]
